FAERS Safety Report 6079432-4 (Version None)
Quarter: 2009Q1

REPORT INFORMATION
  Report Type: 
  Country: None (occurrence: None)
  Receive Date: 20090216
  Receipt Date: 20090204
  Transmission Date: 20090719
  Serious: No
  Sender: FDA-Public Use
  Company Number: PHEH2009US00562

PATIENT
  Sex: Female
  Weight: 92.971 kg

DRUGS (2)
  1. RECLAST [Suspect]
     Indication: OSTEOPOROSIS
     Dosage: 5 MG, YEARLY
     Dates: start: 20080227, end: 20080227
  2. VITAMIN D [Concomitant]
     Dosage: 50000 IU, QW
     Route: 048

REACTIONS (4)
  - ABASIA [None]
  - ARTHRALGIA [None]
  - RASH PUSTULAR [None]
  - SKIN DISORDER [None]
